FAERS Safety Report 13134354 (Version 2)
Quarter: 2017Q1

REPORT INFORMATION
  Report Type: Spontaneous
  Country: US (occurrence: US)
  Receive Date: 20170120
  Receipt Date: 20170123
  Transmission Date: 20170428
  Serious: Yes (Other)
  Sender: FDA-Public Use
  Company Number: PHHY2017US007692

PATIENT
  Age: 34 Year
  Sex: Female

DRUGS (7)
  1. HCG [Suspect]
     Active Substance: GONADOTROPHIN, CHORIONIC
     Indication: OVARIAN FAILURE
     Dosage: 10000 IU, UNK
     Route: 030
  2. ESTRADIOL. [Suspect]
     Active Substance: ESTRADIOL
     Dosage: 3 MG, THRICE IN A WEEK
     Route: 030
  3. SILDENAFIL. [Suspect]
     Active Substance: SILDENAFIL
     Indication: OVARIAN FAILURE
     Dosage: 50 MG, QD
     Route: 067
  4. ASPIRIN. [Suspect]
     Active Substance: ASPIRIN
     Indication: OVARIAN FAILURE
     Route: 048
  5. ESTRADIOL. [Suspect]
     Active Substance: ESTRADIOL
     Indication: OVARIAN FAILURE
     Dosage: 4 MG, TWICE IN A WEEK
     Route: 030
  6. HCG [Suspect]
     Active Substance: GONADOTROPHIN, CHORIONIC
     Dosage: 5000 IU, UNK
     Route: 030
  7. PROGESTERONE. [Suspect]
     Active Substance: PROGESTERONE
     Indication: OVARIAN FAILURE
     Route: 030

REACTIONS (4)
  - Premature delivery [Unknown]
  - Drug effect incomplete [Unknown]
  - Maternal exposure during pregnancy [Unknown]
  - Premature labour [Unknown]
